FAERS Safety Report 8226892-6 (Version None)
Quarter: 2012Q1

REPORT INFORMATION
  Report Type: 
  Country: None (occurrence: None)
  Receive Date: 20120322
  Receipt Date: 20120315
  Transmission Date: 20120608
  Serious: Yes (Hospitalization, Disabling, Other)
  Sender: FDA-Public Use
  Company Number: US-BAYER-2011-090605

PATIENT
  Age: 44 Year
  Sex: Female
  Weight: 113 kg

DRUGS (19)
  1. CALCIUM VIT D [Concomitant]
  2. IBUPROFEN [Concomitant]
  3. BACTRIM DS [Concomitant]
     Dosage: 1 TAB EVERY MON, WED, AND FRI
  4. OXYGEN [Concomitant]
  5. CLONAZEPAM [Concomitant]
  6. OMEPRAZOLE [Concomitant]
  7. ZITHROMAX [Concomitant]
  8. ESTER C [Concomitant]
  9. PREDNISOLONE [Concomitant]
  10. YASMIN [Suspect]
     Dosage: UNK
     Route: 048
     Dates: start: 20050501, end: 20090915
  11. MULTI-VITAMIN [Concomitant]
  12. CRESTOR [Concomitant]
  13. LIPITOR [Concomitant]
  14. PRILOSEC [Concomitant]
  15. MEVACOR [Concomitant]
  16. CYMBALTA [Concomitant]
  17. CYTOXAN [Concomitant]
  18. CELEXA [Concomitant]
  19. FOSAMAX [Concomitant]

REACTIONS (8)
  - DEEP VEIN THROMBOSIS [None]
  - GENERAL PHYSICAL HEALTH DETERIORATION [None]
  - QUALITY OF LIFE DECREASED [None]
  - PULMONARY EMBOLISM [None]
  - INJURY [None]
  - ANXIETY [None]
  - EMOTIONAL DISTRESS [None]
  - PAIN [None]
